FAERS Safety Report 17462928 (Version 8)
Quarter: 2022Q2

REPORT INFORMATION
  Report Type: Report from Study
  Country: US (occurrence: None)
  Receive Date: 20200226
  Receipt Date: 20220601
  Transmission Date: 20220721
  Serious: Yes (Hospitalization)
  Sender: FDA-Public Use
  Company Number: US-EISAI MEDICAL RESEARCH-EC-2020-070187

PATIENT
  Age: 72 Year
  Sex: Male
  Weight: 98 kg

DRUGS (36)
  1. LENVIMA [Suspect]
     Active Substance: LENVATINIB
     Indication: Hepatocellular carcinoma
     Route: 048
     Dates: start: 20200208, end: 2020
  2. LENVIMA [Suspect]
     Active Substance: LENVATINIB
     Route: 048
     Dates: start: 2020, end: 202003
  3. LENVIMA [Suspect]
     Active Substance: LENVATINIB
     Route: 048
     Dates: start: 202004, end: 20201019
  4. ASPIRIN [Concomitant]
     Active Substance: ASPIRIN
  5. ELIQUIS [Concomitant]
     Active Substance: APIXABAN
  6. NITROGLYCERIN [Concomitant]
     Active Substance: NITROGLYCERIN
  7. PROAIR HFA [Concomitant]
     Active Substance: ALBUTEROL SULFATE
  8. VITAMIN D3 [Concomitant]
     Active Substance: CHOLECALCIFEROL
  9. DILTIAZEM [Concomitant]
     Active Substance: DILTIAZEM
  10. ISOSORBIDE MONONITRATE [Concomitant]
     Active Substance: ISOSORBIDE MONONITRATE
  11. LANSOPRAZOLE [Concomitant]
     Active Substance: LANSOPRAZOLE
  12. LEVOFLOXACIN [Concomitant]
     Active Substance: LEVOFLOXACIN
  13. PREDNISONE [Concomitant]
     Active Substance: PREDNISONE
  14. CARVEDILOL [Concomitant]
     Active Substance: CARVEDILOL
  15. LOSARTAN [Concomitant]
     Active Substance: LOSARTAN
  16. HYDROCHLOROTHIAZIDE [Concomitant]
     Active Substance: HYDROCHLOROTHIAZIDE
  17. NITROFURANTOIN [Concomitant]
     Active Substance: NITROFURANTOIN
  18. CLINDAMYCIN [Concomitant]
     Active Substance: CLINDAMYCIN
  19. CEPHALEXIN [Concomitant]
     Active Substance: CEPHALEXIN
  20. AMLODIPINE [Concomitant]
     Active Substance: AMLODIPINE BESYLATE
  21. METHYLPREDNISOLONE [Concomitant]
     Active Substance: METHYLPREDNISOLONE
  22. PLAVIX [Concomitant]
     Active Substance: CLOPIDOGREL BISULFATE
  23. RANOLAZINE [Concomitant]
     Active Substance: RANOLAZINE
  24. VITAMINS [Concomitant]
     Active Substance: VITAMINS
  25. SALINE MIST [Concomitant]
     Active Substance: SODIUM CHLORIDE
  26. AMIODARONE [Concomitant]
     Active Substance: AMIODARONE
  27. AMOXICILLIN\CLAVULANIC ACID [Concomitant]
     Active Substance: AMOXICILLIN\CLAVULANIC ACID
  28. AZITHROMYCIN [Concomitant]
     Active Substance: AZITHROMYCIN
  29. PANTOPRAZOLE [Concomitant]
     Active Substance: PANTOPRAZOLE
  30. ATORVASTATIN [Concomitant]
     Active Substance: ATORVASTATIN
  31. MINOCYCLINE [Concomitant]
     Active Substance: MINOCYCLINE HYDROCHLORIDE
  32. MUPIROCIN [Concomitant]
     Active Substance: MUPIROCIN
  33. BACTRIM [Concomitant]
     Active Substance: SULFAMETHOXAZOLE\TRIMETHOPRIM
  34. CEFDINIR [Concomitant]
     Active Substance: CEFDINIR
  35. CHLORTHALIDONE [Concomitant]
     Active Substance: CHLORTHALIDONE
  36. CIPROFLOXACIN [Concomitant]
     Active Substance: CIPROFLOXACIN

REACTIONS (17)
  - Blood pressure increased [Unknown]
  - Urinary tract infection [Not Recovered/Not Resolved]
  - Atrial fibrillation [Unknown]
  - Coronavirus infection [Unknown]
  - Hernia obstructive [Unknown]
  - Intestinal obstruction [Unknown]
  - Insomnia [Unknown]
  - Malaise [Unknown]
  - Pain [Unknown]
  - Nausea [Unknown]
  - Blood pressure fluctuation [Recovering/Resolving]
  - Heart rate irregular [Unknown]
  - Peripheral swelling [Unknown]
  - Chest discomfort [Unknown]
  - Feeling abnormal [Unknown]
  - Fatigue [Unknown]
  - Hernia [Recovering/Resolving]

NARRATIVE: CASE EVENT DATE: 20200201
